FAERS Safety Report 23857302 (Version 2)
Quarter: 2024Q2

REPORT INFORMATION
  Report Type: Spontaneous
  Country: US (occurrence: US)
  Receive Date: 20240515
  Receipt Date: 20240620
  Transmission Date: 20240716
  Serious: Yes (Other)
  Sender: FDA-Public Use
  Company Number: US-AUROBINDO-AUR-APL-2024-022603

PATIENT
  Age: 27 Year
  Sex: Female

DRUGS (2)
  1. HYDROXYCHLOROQUINE [Suspect]
     Active Substance: HYDROXYCHLOROQUINE
     Indication: Immunosuppression
     Dosage: UNK (LONG-TERM USE)
     Route: 065
  2. MYCOPHENOLIC ACID [Suspect]
     Active Substance: MYCOPHENOLIC ACID
     Indication: Immunosuppression
     Dosage: UNK (LONG-TERM USE)
     Route: 065

REACTIONS (2)
  - Central nervous system lymphoma [Recovering/Resolving]
  - Epstein-Barr virus associated lymphoma [Recovering/Resolving]
